FAERS Safety Report 15475380 (Version 4)
Quarter: 2019Q1

REPORT INFORMATION
  Report Type: Spontaneous
  Country: US (occurrence: US)
  Receive Date: 20181008
  Receipt Date: 20190128
  Transmission Date: 20190417
  Serious: Yes (Other)
  Sender: FDA-Public Use
  Company Number: US-SA-2018SA275691

PATIENT
  Sex: Male

DRUGS (1)
  1. GOLD BOND ULTIMATE SOFTENING FOOT CREAM [Suspect]
     Active Substance: ALOE VERA LEAF
     Dosage: UNK UNK, Q3D FOR A MONTH
     Dates: start: 20180823

REACTIONS (7)
  - Discharge [Unknown]
  - Tinea pedis [Unknown]
  - Sciatica [Unknown]
  - Dry gangrene [Not Recovered/Not Resolved]
  - Pain [Recovering/Resolving]
  - Erythema [Unknown]
  - Unevaluable event [Unknown]
